FAERS Safety Report 18337587 (Version 7)
Quarter: 2023Q4

REPORT INFORMATION
  Report Type: Spontaneous
  Country: US (occurrence: US)
  Receive Date: 20201002
  Receipt Date: 20231228
  Transmission Date: 20240110
  Serious: Yes (Other)
  Sender: FDA-Public Use
  Company Number: US-009507513-1905USA010048

PATIENT
  Sex: Female
  Weight: 61.224 kg

DRUGS (13)
  1. ZOSTAVAX [Suspect]
     Active Substance: VARICELLA-ZOSTER VIRUS STRAIN OKA/MERCK LIVE ANTIGEN
     Indication: Prophylaxis
     Dosage: .65 MILLILITER
     Route: 030
     Dates: start: 20170623
  2. STERILE DILUENT (WATER) [Suspect]
     Active Substance: WATER
     Indication: Prophylaxis
     Dosage: UNK
     Route: 030
     Dates: start: 20170623, end: 20170623
  3. TYLENOL [Suspect]
     Active Substance: ACETAMINOPHEN
     Dosage: 300 MILLIGRAM
     Dates: start: 20170703
  4. TYLENOL [Suspect]
     Active Substance: ACETAMINOPHEN
     Dosage: 300 MILLIGRAM
     Dates: start: 20170705
  5. TYLENOL [Suspect]
     Active Substance: ACETAMINOPHEN
     Dosage: 300 MILLIGRAM
     Dates: start: 20170706
  6. MAXALT [Suspect]
     Active Substance: RIZATRIPTAN BENZOATE
     Dosage: UNK
     Dates: start: 201707
  7. CITALOPRAM [Concomitant]
     Active Substance: CITALOPRAM HYDROBROMIDE
     Indication: Depression
     Dosage: 40 MILLIGRAM
     Dates: start: 2015, end: 2020
  8. CITALOPRAM [Concomitant]
     Active Substance: CITALOPRAM HYDROBROMIDE
     Dosage: 1 TABLET, 1 TIME PER DAY
     Route: 048
  9. JANUMET [Concomitant]
     Active Substance: METFORMIN HYDROCHLORIDE\SITAGLIPTIN PHOSPHATE
     Indication: Type 2 diabetes mellitus
     Dosage: DOSAGE: 50 MG/1000
     Dates: start: 2012
  10. LOVAZA [Concomitant]
     Active Substance: OMEGA-3-ACID ETHYL ESTERS
     Indication: Type IIa hyperlipidaemia
     Dosage: 2 MILLIGRAM
     Route: 048
  11. LOVAZA [Concomitant]
     Active Substance: OMEGA-3-ACID ETHYL ESTERS
     Dosage: 1 GRAM, BID
     Route: 048
  12. PANTOPRAZOLE [Concomitant]
     Active Substance: PANTOPRAZOLE
     Indication: Gastrooesophageal reflux disease
     Dosage: 40 MILLIGRAM, QD
     Route: 048
  13. NAPROXEN [Concomitant]
     Active Substance: NAPROXEN
     Indication: Rheumatoid arthritis
     Dosage: 500 MILLIGRAM
     Dates: start: 2015

REACTIONS (25)
  - Cerebral atrophy [Unknown]
  - Hemianopia homonymous [Recovering/Resolving]
  - Ischaemic cerebral infarction [Unknown]
  - Cataract [Unknown]
  - Acute sinusitis [Unknown]
  - Acquired mixed hyperlipidaemia [Unknown]
  - Nervous system disorder [Recovered/Resolved]
  - Dyspnoea exertional [Unknown]
  - Eye pruritus [Unknown]
  - Insomnia [Unknown]
  - Left ventricular dysfunction [Unknown]
  - Amnesia [Unknown]
  - Migraine with aura [Not Recovered/Not Resolved]
  - QRS axis abnormal [Unknown]
  - Tachycardia [Unknown]
  - Incorrect route of product administration [Unknown]
  - Body mass index abnormal [Unknown]
  - Night sweats [Unknown]
  - Thirst [Unknown]
  - Diarrhoea [Unknown]
  - Joint swelling [Unknown]
  - Arthralgia [Unknown]
  - Joint stiffness [Unknown]
  - Anxiety [Unknown]
  - Diabetic neuropathy [Unknown]

NARRATIVE: CASE EVENT DATE: 20170623
